FAERS Safety Report 23467518 (Version 1)
Quarter: 2024Q1

REPORT INFORMATION
  Report Type: Spontaneous
  Country: BR (occurrence: BR)
  Receive Date: 20240201
  Receipt Date: 20240201
  Transmission Date: 20240410
  Serious: Yes (Other)
  Sender: FDA-Public Use
  Company Number: BR-JNJFOC-20240171948

PATIENT
  Age: 28 Year
  Sex: Female

DRUGS (2)
  1. TOPAMAX [Suspect]
     Active Substance: TOPIRAMATE
     Indication: Binge eating
     Route: 048
  2. BUPROPION [Suspect]
     Active Substance: BUPROPION
     Indication: Binge eating
     Route: 065

REACTIONS (3)
  - Evans syndrome [Unknown]
  - Exposure during pregnancy [Unknown]
  - Off label use [Unknown]
